FAERS Safety Report 14225018 (Version 2)
Quarter: 2017Q4

REPORT INFORMATION
  Report Type: Report from Study
  Country: EG (occurrence: EG)
  Receive Date: 20171127
  Receipt Date: 20171206
  Transmission Date: 20180321
  Serious: Yes (Other)
  Sender: FDA-Public Use
  Company Number: EG-ROCHE-2029689

PATIENT

DRUGS (3)
  1. PEG-INTERFERON ALFA 2A [Suspect]
     Active Substance: PEGINTERFERON ALFA-2A
     Indication: CHRONIC HEPATITIS C
     Route: 058
  2. RIBAVIRIN. [Suspect]
     Active Substance: RIBAVIRIN
     Indication: CHRONIC HEPATITIS C
     Dosage: 1000 OR 1200 MG PER DAY
     Route: 048
  3. SOFOSBUVIR [Suspect]
     Active Substance: SOFOSBUVIR
     Indication: CHRONIC HEPATITIS C
     Route: 065

REACTIONS (27)
  - Anti-neutrophil cytoplasmic antibody positive vasculitis [Unknown]
  - Asthenia [Unknown]
  - Rash [Unknown]
  - Hepatic failure [Unknown]
  - Deep vein thrombosis [Unknown]
  - Pruritus [Unknown]
  - Diarrhoea [Unknown]
  - Cutaneous vasculitis [Unknown]
  - Myalgia [Unknown]
  - Influenza like illness [Unknown]
  - Anaemia [Unknown]
  - Neutropenia [Unknown]
  - Fatigue [Unknown]
  - Decreased appetite [Unknown]
  - Vomiting [Unknown]
  - Irritability [Unknown]
  - Thrombocytopenia [Unknown]
  - Hyperbilirubinaemia [Unknown]
  - Insomnia [Unknown]
  - Gingival bleeding [Unknown]
  - Cerebral ischaemia [Unknown]
  - Hepatic encephalopathy [Unknown]
  - Headache [Unknown]
  - Pyrexia [Unknown]
  - Nausea [Unknown]
  - Epistaxis [Unknown]
  - Menorrhagia [Unknown]
